FAERS Safety Report 9354771 (Version 2)
Quarter: 2013Q3

REPORT INFORMATION
  Report Type: Spontaneous
  Country: JP (occurrence: JP)
  Receive Date: 20130619
  Receipt Date: 20130711
  Transmission Date: 20140515
  Serious: Yes (Hospitalization)
  Sender: FDA-Public Use
  Company Number: JP-009507513-1306JPN005586

PATIENT
  Age: 69 Year
  Sex: Female
  Weight: 50.8 kg

DRUGS (3)
  1. GASTER [Suspect]
     Indication: PROPHYLAXIS AGAINST GASTROINTESTINAL ULCER
     Dosage: 20 MG, BID
     Route: 048
     Dates: start: 20130510, end: 20130517
  2. GASTER [Suspect]
     Indication: GASTRITIS
  3. CELECOX [Suspect]
     Indication: MUSCULOSKELETAL PAIN
     Dosage: 100 MG, BID
     Route: 048
     Dates: start: 20130510, end: 20130517

REACTIONS (1)
  - Rash generalised [Recovering/Resolving]
